FAERS Safety Report 13028452 (Version 1)
Quarter: 2016Q4

REPORT INFORMATION
  Report Type: Report from Study
  Country: None (occurrence: US)
  Receive Date: 20161214
  Receipt Date: 20161214
  Transmission Date: 20170207
  Serious: Yes (Hospitalization, Disabling)
  Sender: FDA-Public Use
  Company Number: US-ABBVIE-16P-163-1805154-00

PATIENT
  Age: 45 Year
  Sex: Male

DRUGS (2)
  1. SEROQUEL [Concomitant]
     Active Substance: QUETIAPINE FUMARATE
     Indication: BIPOLAR DISORDER
  2. DEPAKOTE ER [Suspect]
     Active Substance: DIVALPROEX SODIUM
     Indication: BIPOLAR DISORDER
     Route: 048
     Dates: start: 2010

REACTIONS (9)
  - Spinal fracture [Recovering/Resolving]
  - Unemployment [Not Recovered/Not Resolved]
  - Femur fracture [Recovering/Resolving]
  - Nerve injury [Recovering/Resolving]
  - Cervical vertebral fracture [Recovering/Resolving]
  - Road traffic accident [Recovering/Resolving]
  - Ligament rupture [Recovering/Resolving]
  - Pelvic fracture [Recovering/Resolving]
  - Pain [Recovering/Resolving]

NARRATIVE: CASE EVENT DATE: 2016
